FAERS Safety Report 8439692-9 (Version None)
Quarter: 2012Q2

REPORT INFORMATION
  Report Type: 
  Country: None (occurrence: None)
  Receive Date: 20120615
  Receipt Date: 20120611
  Transmission Date: 20120825
  Serious: No
  Sender: FDA-Public Use
  Company Number: US-PFIZER INC-2012111945

PATIENT
  Sex: Female
  Weight: 53.968 kg

DRUGS (3)
  1. SYNTHROID [Concomitant]
     Indication: THYROID DISORDER
     Dosage: 0.112 MG,DAILY
  2. PRISTIQ [Suspect]
     Indication: DEPRESSION
     Dosage: 50 MG, DAILY
     Route: 048
     Dates: start: 20110201
  3. PRISTIQ [Suspect]
     Indication: ANXIETY

REACTIONS (5)
  - FEELING ABNORMAL [None]
  - MALAISE [None]
  - NAUSEA [None]
  - DRUG DOSE OMISSION [None]
  - HEADACHE [None]
